FAERS Safety Report 5601201-7 (Version None)
Quarter: 2008Q1

REPORT INFORMATION
  Report Type: 
  Country: None (occurrence: None)
  Receive Date: 20080108
  Receipt Date: 20070823
  Transmission Date: 20080703
  Serious: Yes (Life-Threatening, Hospitalization)
  Sender: FDA-Public Use
  Company Number: PERC20070046

PATIENT
  Age: 56 Year
  Sex: Male
  Weight: 86.1834 kg

DRUGS (4)
  1. ENDOCET 5MG/325MG [Suspect]
     Indication: PAIN PROPHYLAXIS
     Dosage: 2 TABS, ONCE, PER ORAL
     Route: 048
     Dates: start: 20070810, end: 20070810
  2. DIAZEPAM [Suspect]
     Indication: SEDATIVE THERAPY
     Dosage: 5 MG, ONCE, PER ORAL
     Route: 048
     Dates: start: 20070810, end: 20070810
  3. CIPROFLOXACIN [Suspect]
     Indication: PAIN PROPHYLAXIS
     Dosage: 500 MG, ONCE, PER ORAL
     Route: 048
     Dates: start: 20070810, end: 20070810
  4. VYTORIN [Concomitant]

REACTIONS (7)
  - BALANCE DISORDER [None]
  - BRADYCARDIA [None]
  - COLD SWEAT [None]
  - CONVULSION [None]
  - FATIGUE [None]
  - HYPERHIDROSIS [None]
  - RESPIRATORY ARREST [None]
